FAERS Safety Report 7307641-2 (Version None)
Quarter: 2011Q1

REPORT INFORMATION
  Report Type: 
  Country: None (occurrence: None)
  Receive Date: 20110223
  Receipt Date: 20110211
  Transmission Date: 20110831
  Serious: Yes (Hospitalization)
  Sender: FDA-Public Use
  Company Number: SE-SANOFI-AVENTIS-2011SA008824

PATIENT
  Age: 65 Year
  Sex: Male

DRUGS (8)
  1. SIMVASTATIN [Concomitant]
  2. IMOVANE [Concomitant]
  3. MULTAQ [Suspect]
     Route: 048
     Dates: start: 20110125, end: 20110129
  4. ZOLOFT [Concomitant]
  5. DIOVANE [Suspect]
     Route: 048
     Dates: end: 20110124
  6. LAMOTRIGINE [Concomitant]
  7. MULTAQ [Suspect]
     Indication: ATRIAL FIBRILLATION
     Route: 048
     Dates: start: 20101101, end: 20110124
  8. MULTAQ [Suspect]
     Route: 048
     Dates: start: 20110130

REACTIONS (4)
  - SWELLING FACE [None]
  - HYPERSENSITIVITY [None]
  - LOCAL SWELLING [None]
  - UNDERDOSE [None]
